FAERS Safety Report 17109417 (Version 3)
Quarter: 2019Q4

REPORT INFORMATION
  Report Type: Spontaneous
  Country: GB (occurrence: GB)
  Receive Date: 20191204
  Receipt Date: 20191218
  Transmission Date: 20200122
  Serious: Yes (Life-Threatening, Hospitalization)
  Sender: FDA-Public Use
  Company Number: GB-SA-2019SA334593

PATIENT
  Age: 40 Year
  Sex: Female

DRUGS (14)
  1. MACROGOL [Concomitant]
     Active Substance: POLYETHYLENE GLYCOLS
  2. LEMTRADA [Suspect]
     Active Substance: ALEMTUZUMAB
     Dosage: 12 MG
     Route: 042
     Dates: start: 20171106
  3. GLYCEROL SUPPOSITORIES B.P. [Concomitant]
  4. DOCUSATE [Concomitant]
     Active Substance: DOCUSATE
  5. GLYCEROL [Concomitant]
     Active Substance: GLYCERIN
  6. CYCLIZINE [Concomitant]
     Active Substance: CYCLIZINE
  7. ADCAL [CALCIUM CARBONATE] [Concomitant]
  8. BACLOFEN. [Concomitant]
     Active Substance: BACLOFEN
  9. SENNA [Concomitant]
     Active Substance: SENNA LEAF\SENNOSIDES\SENNOSIDES A AND B
  10. LEMTRADA [Suspect]
     Active Substance: ALEMTUZUMAB
     Indication: RELAPSING-REMITTING MULTIPLE SCLEROSIS
     Dosage: 12 MG
     Route: 042
     Dates: start: 201901, end: 20190319
  11. BISACODYL. [Concomitant]
     Active Substance: BISACODYL
  12. CALCIUM CARBONATE. [Concomitant]
     Active Substance: CALCIUM CARBONATE
  13. PRUCALOPRIDE [Concomitant]
     Active Substance: PRUCALOPRIDE
  14. CASSIA SENNA [Concomitant]
     Active Substance: HERBALS\SENNOSIDES

REACTIONS (10)
  - Seizure [Recovering/Resolving]
  - Pyrexia [Recovering/Resolving]
  - Thrombotic thrombocytopenic purpura [Recovering/Resolving]
  - Paranoia [Recovering/Resolving]
  - Asthenia [Not Recovered/Not Resolved]
  - Tachycardia [Recovering/Resolving]
  - Headache [Recovering/Resolving]
  - Confusional state [Recovering/Resolving]
  - Nausea [Recovering/Resolving]
  - Haematuria [Recovering/Resolving]

NARRATIVE: CASE EVENT DATE: 20191026
